FAERS Safety Report 10757200 (Version 1)
Quarter: 2015Q1

REPORT INFORMATION
  Report Type: Spontaneous
  Country: FR (occurrence: None)
  Receive Date: 20150130
  Receipt Date: 20150130
  Transmission Date: 20150721
  Serious: Yes (Hospitalization, Other)
  Sender: FDA-Public Use
  Company Number: ADR-2015-00201

PATIENT
  Sex: Female

DRUGS (4)
  1. INSULIN [Concomitant]
     Active Substance: INSULIN NOS
  2. GLICAZIDA (GLICLAZIDE) [Concomitant]
  3. BACLOFEN ORAL [Suspect]
     Active Substance: BACLOFEN
     Dates: start: 201203
  4. VICTOZA [Concomitant]
     Active Substance: LIRAGLUTIDE

REACTIONS (7)
  - Abdominal pain [None]
  - Paraesthesia [None]
  - Treatment noncompliance [None]
  - Vomiting [None]
  - Malaise [None]
  - Decreased appetite [None]
  - Hypoglycaemia [None]
